FAERS Safety Report 9694548 (Version 1)
Quarter: 2013Q4

REPORT INFORMATION
  Report Type: Spontaneous
  Country: US (occurrence: US)
  Receive Date: 20131118
  Receipt Date: 20131118
  Transmission Date: 20140711
  Serious: No
  Sender: FDA-Public Use
  Company Number: US-SANOFI-AVENTIS-2013SA094829

PATIENT
  Age: 72 Year
  Sex: Male

DRUGS (1)
  1. ZALTRAP [Suspect]
     Route: 065

REACTIONS (1)
  - Drug ineffective [Unknown]
